FAERS Safety Report 20330494 (Version 2)
Quarter: 2022Q1

REPORT INFORMATION
  Report Type: Report from Study
  Country: US (occurrence: US)
  Receive Date: 20220113
  Receipt Date: 20220223
  Transmission Date: 20220423
  Serious: No
  Sender: FDA-Public Use
  Company Number: US-NOVARTISTESTPH-NVSC2022US006479

PATIENT
  Age: 36 Year
  Sex: Female

DRUGS (1)
  1. KESIMPTA [Suspect]
     Active Substance: OFATUMUMAB
     Indication: Multiple sclerosis
     Dosage: ONCE A WEEK FOR THREE WEEKS, THEN A WEEK BREAK THEN ONCE A MONTH THEREAFTER .
     Route: 058
     Dates: start: 20210815

REACTIONS (4)
  - Sinusitis [Unknown]
  - Nasal congestion [Unknown]
  - Cough [Unknown]
  - Head discomfort [Unknown]

NARRATIVE: CASE EVENT DATE: 20211212
